FAERS Safety Report 25586446 (Version 1)
Quarter: 2025Q3

REPORT INFORMATION
  Report Type: Spontaneous
  Country: CA (occurrence: CA)
  Receive Date: 20250721
  Receipt Date: 20250721
  Transmission Date: 20251021
  Serious: Yes (Other)
  Sender: TEVA
  Company Number: CA-TEVA-VS-3351642

PATIENT
  Age: 85 Year
  Sex: Male

DRUGS (11)
  1. LISINOPRIL [Suspect]
     Active Substance: LISINOPRIL
     Indication: Product used for unknown indication
     Route: 048
  2. LISINOPRIL [Suspect]
     Active Substance: LISINOPRIL
     Indication: Product used for unknown indication
     Route: 048
  3. LEVOTHYROXINE [Concomitant]
     Active Substance: LEVOTHYROXINE
     Indication: Product used for unknown indication
     Route: 065
  4. ISOSORBIDE [Concomitant]
     Active Substance: ISOSORBIDE
     Indication: Product used for unknown indication
     Route: 065
  5. RANOLAZINE [Interacting]
     Active Substance: RANOLAZINE
     Indication: Angina pectoris
     Route: 048
  6. METOPROLOL [Concomitant]
     Active Substance: METOPROLOL
     Indication: Product used for unknown indication
     Route: 065
  7. FUROSEMIDE [Concomitant]
     Active Substance: FUROSEMIDE
     Indication: Product used for unknown indication
     Route: 065
  8. ATORVASTATIN [Concomitant]
     Active Substance: ATORVASTATIN
     Indication: Product used for unknown indication
     Route: 065
  9. CLOPIDOGREL [Concomitant]
     Active Substance: CLOPIDOGREL BISULFATE
     Indication: Product used for unknown indication
     Route: 065
  10. DUTASTERIDE [Concomitant]
     Active Substance: DUTASTERIDE
     Indication: Product used for unknown indication
     Route: 065
  11. ASPIRIN [Concomitant]
     Active Substance: ASPIRIN
     Indication: Product used for unknown indication
     Route: 065

REACTIONS (8)
  - Drug interaction [Recovering/Resolving]
  - Diarrhoea [Recovering/Resolving]
  - Balance disorder [Recovering/Resolving]
  - Feeling abnormal [Recovering/Resolving]
  - Hyperkalaemia [Recovering/Resolving]
  - Constipation [Recovering/Resolving]
  - Dizziness [Recovering/Resolving]
  - Nasopharyngitis [Recovering/Resolving]
